FAERS Safety Report 12341886 (Version 1)
Quarter: 2016Q2

REPORT INFORMATION
  Report Type: Spontaneous
  Country: US (occurrence: None)
  Receive Date: 20160505
  Receipt Date: 20160505
  Transmission Date: 20160815
  Serious: Yes (Other)
  Sender: FDA-Public Use
  Company Number: None

PATIENT
  Age: 55 Year
  Sex: Female
  Weight: 118.39 kg

DRUGS (1)
  1. LEVOFLLOXACIN, 500MG CLARIS [Suspect]
     Active Substance: LEVOFLOXACIN
     Indication: RESPIRATORY TRACT INFECTION
     Route: 043
     Dates: start: 20160429

REACTIONS (1)
  - Infusion site rash [None]

NARRATIVE: CASE EVENT DATE: 20160429
